FAERS Safety Report 6673525-6 (Version None)
Quarter: 2010Q1

REPORT INFORMATION
  Report Type: 
  Country: None (occurrence: None)
  Receive Date: 20100329
  Receipt Date: 20091125
  Transmission Date: 20100710
  Serious: Yes (Other)
  Sender: FDA-Public Use
  Company Number: 2009305473

PATIENT
  Age: 62 Year
  Sex: Female
  Weight: 78 kg

DRUGS (2)
  1. GEODON [Suspect]
     Indication: BIPOLAR DISORDER
     Dosage: FREQUENCY: 2X/DAY
     Dates: start: 20091101
  2. NEURONTIN [Concomitant]

REACTIONS (2)
  - AKATHISIA [None]
  - PARKINSONISM [None]
